FAERS Safety Report 4288703-3 (Version None)
Quarter: 2004Q1

REPORT INFORMATION
  Report Type: 
  Country: None (occurrence: None)
  Receive Date: 20040209
  Receipt Date: 20031125
  Transmission Date: 20041129
  Serious: Yes (Life-Threatening, Hospitalization, Other)
  Sender: FDA-Public Use
  Company Number: WAES 0312USA00076

PATIENT
  Age: 56 Year
  Sex: Female
  Weight: 147 kg

DRUGS (11)
  1. VICODIN [Concomitant]
     Indication: PAIN
     Route: 048
  2. ALBUTEROL [Concomitant]
     Indication: CHRONIC OBSTRUCTIVE AIRWAYS DISEASE
     Route: 048
  3. BUMEX [Concomitant]
     Indication: OEDEMA
     Route: 048
  4. NEXIUM [Concomitant]
     Indication: GASTROOESOPHAGEAL REFLUX DISEASE
     Route: 048
  5. PEPCID [Concomitant]
     Route: 048
  6. FLONASE [Concomitant]
  7. MAXZIDE [Concomitant]
     Indication: OEDEMA
     Route: 048
  8. REGLAN [Concomitant]
  9. NYSTATIN [Concomitant]
  10. VIOXX [Suspect]
     Indication: BACK PAIN
     Route: 048
     Dates: start: 20000523, end: 20000605
  11. VIOXX [Suspect]
     Indication: ARTHRITIS
     Route: 048
     Dates: start: 20000523, end: 20000605

REACTIONS (21)
  - ADVERSE DRUG REACTION [None]
  - ASTHMA [None]
  - BLOOD ALBUMIN DECREASED [None]
  - BLOOD ALKALINE PHOSPHATASE INCREASED [None]
  - CARDIAC FAILURE CONGESTIVE [None]
  - CARDIOMEGALY [None]
  - CHEST X-RAY ABNORMAL [None]
  - CHRONIC OBSTRUCTIVE AIRWAYS DISEASE [None]
  - CHRONIC OBSTRUCTIVE AIRWAYS DISEASE EXACERBATED [None]
  - CONFUSIONAL STATE [None]
  - DYSPNOEA [None]
  - FLUID RETENTION [None]
  - FUNGAL RASH [None]
  - HYPERSENSITIVITY [None]
  - HYPOXIA [None]
  - PICKWICKIAN SYNDROME [None]
  - PULMONARY OEDEMA [None]
  - RESPIRATORY DISTRESS [None]
  - SINUS CONGESTION [None]
  - SLEEP APNOEA SYNDROME [None]
  - SOMNOLENCE [None]
